FAERS Safety Report 9586268 (Version 1)
Quarter: 2013Q4

REPORT INFORMATION
  Report Type: Spontaneous
  Country: US (occurrence: None)
  Receive Date: 20131002
  Receipt Date: 20131002
  Transmission Date: 20140711
  Serious: No
  Sender: FDA-Public Use
  Company Number: None

PATIENT
  Age: 67 Year
  Sex: Female
  Weight: 72.58 kg

DRUGS (4)
  1. NAPROXEN SODIUM [Suspect]
     Indication: BACK PAIN
     Dates: end: 20130912
  2. LISINOPRIL [Concomitant]
  3. HYDROCHLOROTHIAZIDE [Concomitant]
  4. ACETAMINOPHEN [Concomitant]

REACTIONS (3)
  - Flank pain [None]
  - Urine output decreased [None]
  - Back pain [None]
